FAERS Safety Report 8020153-6 (Version None)
Quarter: 2012Q1

REPORT INFORMATION
  Report Type: 
  Country: None (occurrence: None)
  Receive Date: 20120103
  Receipt Date: 20111229
  Transmission Date: 20120608
  Serious: Yes (Other)
  Sender: FDA-Public Use
  Company Number: US-BAYER-2011-119004

PATIENT
  Sex: Female

DRUGS (2)
  1. MIRENA [Suspect]
     Indication: CONTRACEPTION
     Dosage: 20 MCG/24HR, CONT
     Dates: start: 20101202, end: 20110912
  2. MIRENA [Suspect]
     Indication: MENORRHAGIA

REACTIONS (2)
  - VAGINAL HAEMORRHAGE [None]
  - DEVICE EXPULSION [None]
